FAERS Safety Report 4367318-2 (Version None)
Quarter: 2004Q2

REPORT INFORMATION
  Report Type: 
  Country: None (occurrence: None)
  Receive Date: 20040524
  Receipt Date: 20040513
  Transmission Date: 20050107
  Serious: Yes (Death, Other)
  Sender: FDA-Public Use
  Company Number: 2004-NL-00064NL

PATIENT
  Age: 90 Year

DRUGS (7)
  1. PERSANTIN RETARD 200 (DIPYRIDAMOLE) [Suspect]
     Dosage: 400 MG (200 MG, 2 IN 1 D) PO
     Route: 048
  2. ACENOCOUMAROL (ACENOCOUMAROL) [Concomitant]
  3. SELOKEEN (METOPROLOL TARTRATE) [Concomitant]
  4. COZAAR [Concomitant]
  5. FUROSEMIDE [Concomitant]
  6. ISOSORBIDE MONONITRATE RETARD (ISOSORBIDE MONONITRATE) [Concomitant]
  7. FERROFUMARAT (FERROUS FUMARATE) [Concomitant]

REACTIONS (1)
  - SUDDEN DEATH [None]
